FAERS Safety Report 9032954 (Version 2)
Quarter: 2013Q2

REPORT INFORMATION
  Report Type: Spontaneous
  Country: NO (occurrence: NO)
  Receive Date: 20130128
  Receipt Date: 20130502
  Transmission Date: 20140414
  Serious: Yes (Hospitalization)
  Sender: FDA-Public Use
  Company Number: NO-AMGEN-NORSP2013004275

PATIENT
  Age: 56 Year
  Sex: Female
  Weight: 50 kg

DRUGS (4)
  1. PROLIA [Suspect]
     Indication: OSTEOPOROSIS
     Dosage: 60 MG, UNK
     Dates: start: 20120126
  2. CALCIUM + VITAMIN D [Concomitant]
  3. TAMOXIFEN MYLAN [Concomitant]
     Indication: BREAST CANCER
     Dosage: UNK
     Dates: start: 20100725
  4. CALCIGRAN FORTE [Concomitant]
     Indication: SUPPLEMENTATION THERAPY

REACTIONS (11)
  - Pyelonephritis [Recovering/Resolving]
  - Gait disturbance [Unknown]
  - Psoriasis [Recovering/Resolving]
  - Local swelling [Unknown]
  - Myalgia [Recovering/Resolving]
  - Bone pain [Recovering/Resolving]
  - Arthralgia [Recovering/Resolving]
  - Back pain [Recovering/Resolving]
  - Pruritus [Recovering/Resolving]
  - Pain in extremity [Recovering/Resolving]
  - Erythema [Unknown]
